FAERS Safety Report 4524346-1 (Version None)
Quarter: 2004Q4

REPORT INFORMATION
  Report Type: 
  Country: None (occurrence: None)
  Receive Date: 20041119
  Receipt Date: 20040816
  Transmission Date: 20050328
  Serious: Yes (Other)
  Sender: FDA-Public Use
  Company Number: PHEH2004US08825

PATIENT
  Age: 51 Year
  Sex: Female

DRUGS (5)
  1. ZELNORM [Suspect]
     Indication: IRRITABLE BOWEL SYNDROME
     Dosage: 6 MG, BID, ORAL
     Route: 048
     Dates: start: 20030226, end: 20040816
  2. SYNTHROID [Concomitant]
  3. PREVACID [Concomitant]
  4. FLONASE [Concomitant]
  5. DEPO-PROVERA [Concomitant]

REACTIONS (3)
  - ABDOMINAL PAIN UPPER [None]
  - ARRHYTHMIA [None]
  - PALPITATIONS [None]
